FAERS Safety Report 7905135-4 (Version None)
Quarter: 2011Q4

REPORT INFORMATION
  Report Type: 
  Country: None (occurrence: None)
  Receive Date: 20111109
  Receipt Date: 20111025
  Transmission Date: 20120403
  Serious: Yes (Other)
  Sender: FDA-Public Use
  Company Number: US-WATSON-2011-18645

PATIENT
  Age: 16 Year
  Sex: Male

DRUGS (6)
  1. ATRACURIUM BESYLATE [Suspect]
     Indication: ANAESTHESIA
  2. SEVOFLURANE [Suspect]
     Indication: ANAESTHESIA
  3. FENTANYL-100 [Suspect]
     Indication: ANAESTHESIA
     Dosage: FENTANYL-BUPIVACAINE 0.125% AT 20 UG-HR (MINUS 1) (TOTAL OF 89 MG)
     Route: 008
  4. PROPOFOL [Suspect]
     Indication: ANAESTHESIA
  5. NEOSTIGMINE [Suspect]
     Indication: ANAESTHESIA
  6. GLYCOPYRROLATE                     /00196201/ [Suspect]
     Indication: ANAESTHESIA

REACTIONS (3)
  - HYPOXIA [None]
  - PULMONARY OEDEMA [None]
  - LARYNGOSPASM [None]
